FAERS Safety Report 5104072-0 (Version None)
Quarter: 2006Q3

REPORT INFORMATION
  Report Type: 
  Country: None (occurrence: None)
  Receive Date: 20060911
  Receipt Date: 20060829
  Transmission Date: 20061208
  Serious: Yes (Hospitalization)
  Sender: FDA-Public Use
  Company Number: 2005134540

PATIENT
  Age: 67 Year
  Sex: Male

DRUGS (10)
  1. SUTENT [Suspect]
     Indication: METASTATIC RENAL CELL CARCINOMA
     Dosage: 50 MG (50 MG,EVERY DAY), ORAL
     Route: 048
     Dates: start: 20050822, end: 20050918
  2. SECTRAL [Concomitant]
  3. AUGMENTIN '125' [Concomitant]
  4. CIPROFLOXACIN [Concomitant]
  5. INSULIN [Concomitant]
  6. DIAMICRON              (GLICLAZIDE) [Concomitant]
  7. STAGID         (METFORMIN EMBONATE) [Concomitant]
  8. RABEPRAZOLE SODIUM [Concomitant]
  9. DIGOXIN [Concomitant]
  10. INNOHEP [Concomitant]

REACTIONS (2)
  - ATRIAL FIBRILLATION [None]
  - PYREXIA [None]
